FAERS Safety Report 6463158-9 (Version None)
Quarter: 2009Q4

REPORT INFORMATION
  Report Type: 
  Country: None (occurrence: None)
  Receive Date: 20091123
  Receipt Date: 20091111
  Transmission Date: 20100525
  Serious: Yes (Hospitalization)
  Sender: FDA-Public Use
  Company Number: 2009-04733

PATIENT
  Age: 63 Year
  Sex: Female
  Weight: 53.5 kg

DRUGS (11)
  1. VELCADE [Suspect]
     Indication: MULTIPLE MYELOMA
     Dosage: 2 MG, UNK, INTRAVENOUS
     Route: 042
     Dates: start: 20090731
  2. REVLIMID [Suspect]
     Indication: MULTIPLE MYELOMA
     Dosage: UNK, UNK, ORAL
     Route: 048
     Dates: start: 20090731
  3. DEXAMETHASONE TAB [Suspect]
     Indication: MULTIPLE MYELOMA
     Dosage: UNK, UNK, ORAL
     Route: 048
     Dates: start: 20090731
  4. ZOMETA [Concomitant]
  5. ACYCLOVIR [Concomitant]
  6. FLUCONAZOLE [Concomitant]
  7. SINGULAIR [Concomitant]
  8. PRILOSEC [Concomitant]
  9. ASPIRIN [Concomitant]
  10. MULTIVITAMINS (ERGOCALCIFEROL, PANTHENOL, NICOTINAMIDE, RIBOFLAVIN, TH [Concomitant]
  11. CALCIUM WITH VITAMIN D (ERGOCALCIFEROL, CALCIUM SODIUM LACTATE,  CALCI [Concomitant]

REACTIONS (3)
  - CATHETER SITE SWELLING [None]
  - MEDICAL DEVICE COMPLICATION [None]
  - THROMBOSIS [None]
